FAERS Safety Report 20933198 (Version 1)
Quarter: 2022Q2

REPORT INFORMATION
  Report Type: Spontaneous
  Country: US (occurrence: US)
  Receive Date: 20220608
  Receipt Date: 20220608
  Transmission Date: 20220721
  Serious: Yes (Other)
  Sender: FDA-Public Use
  Company Number: US-BIOMARINAP-US-2022-143669

PATIENT
  Sex: Female
  Weight: 99.773 kg

DRUGS (5)
  1. PALYNZIQ [Suspect]
     Active Substance: PEGVALIASE-PQPZ
     Indication: Phenylketonuria
     Dosage: 20 MILLIGRAM, QD
     Route: 058
  2. PALYNZIQ [Suspect]
     Active Substance: PEGVALIASE-PQPZ
     Dosage: 10 MILLIGRAM, QD
     Route: 058
  3. ADVIL [Concomitant]
     Active Substance: IBUPROFEN
     Indication: Product used for unknown indication
     Dosage: 200 MILLIGRAM
  4. FAMOTIDINE [Concomitant]
     Active Substance: FAMOTIDINE
     Indication: Product used for unknown indication
     Dosage: 20 MILLIGRAM
  5. ZYRTEC [Concomitant]
     Active Substance: CETIRIZINE HYDROCHLORIDE
     Indication: Product used for unknown indication
     Dosage: 10 MILLIGRAM

REACTIONS (6)
  - Anaphylactic reaction [Unknown]
  - Nausea [Unknown]
  - Vomiting [Unknown]
  - Dyspnoea [Unknown]
  - Swelling [Unknown]
  - Amino acid level increased [Unknown]

NARRATIVE: CASE EVENT DATE: 20220301
